FAERS Safety Report 12122194 (Version 2)
Quarter: 2016Q2

REPORT INFORMATION
  Report Type: Spontaneous
  Country: FR (occurrence: FR)
  Receive Date: 20160226
  Receipt Date: 20160414
  Transmission Date: 20160815
  Serious: Yes (Death, Other)
  Sender: FDA-Public Use
  Company Number: FR-ALEXION PHARMACEUTICALS INC-A201601263

PATIENT
  Age: 53 Year
  Sex: Male

DRUGS (2)
  1. SOLIRIS [Suspect]
     Active Substance: ECULIZUMAB
     Indication: THROMBOTIC MICROANGIOPATHY
     Dosage: UNK
     Route: 042
  2. SOLIRIS [Suspect]
     Active Substance: ECULIZUMAB
     Indication: OFF LABEL USE

REACTIONS (9)
  - Hepatic pain [Unknown]
  - Off label use [Unknown]
  - Cardiac murmur [Unknown]
  - Cardiac failure acute [Unknown]
  - Haematoma [Recovered/Resolved]
  - Venoocclusive disease [Recovered/Resolved]
  - Adverse event [Unknown]
  - Death [Fatal]
  - Endocarditis [Unknown]

NARRATIVE: CASE EVENT DATE: 20160116
